FAERS Safety Report 6459110-X (Version None)
Quarter: 2009Q4

REPORT INFORMATION
  Report Type: 
  Country: None (occurrence: None)
  Receive Date: 20091127
  Receipt Date: 20091116
  Transmission Date: 20100525
  Serious: Yes (Death)
  Sender: FDA-Public Use
  Company Number: JP-PFIZER INC-2009287477

PATIENT
  Age: 73 Year
  Sex: Male
  Weight: 56.1 kg

DRUGS (18)
  1. SUNITINIB MALATE [Suspect]
     Indication: RENAL CELL CARCINOMA
     Dosage: 50 MG, 1X/DAY
     Route: 048
     Dates: start: 20091006, end: 20091008
  2. SORAFENIB TOSILATE [Concomitant]
     Dosage: 400 MG, 1X/DAY
     Route: 048
     Dates: start: 20081107, end: 20091004
  3. ASPIRIN [Concomitant]
     Route: 048
  4. PLAVIX [Concomitant]
     Route: 048
  5. MICARDIS [Concomitant]
     Route: 048
  6. MEVALOTIN [Concomitant]
     Route: 048
  7. LASIX [Concomitant]
     Route: 048
  8. ALDACTONE [Concomitant]
     Route: 048
  9. PARIET [Concomitant]
     Route: 048
  10. MAGNESIUM OXIDE [Concomitant]
     Route: 048
  11. LOXONIN [Concomitant]
     Route: 048
  12. SELBEX [Concomitant]
     Route: 048
  13. NOVAMIN [Concomitant]
     Route: 048
  14. TRAVELMIN [Concomitant]
     Route: 048
  15. ADALAT CC [Concomitant]
     Route: 048
  16. FENTANYL [Concomitant]
     Route: 062
  17. OXYCONTIN [Concomitant]
     Route: 048
  18. LOPEMIN [Concomitant]
     Route: 048

REACTIONS (5)
  - BLOOD CREATINE PHOSPHOKINASE INCREASED [None]
  - BLOOD LACTATE DEHYDROGENASE INCREASED [None]
  - CARDIO-RESPIRATORY ARREST [None]
  - MYOCARDIAL INFARCTION [None]
  - WHITE BLOOD CELL COUNT INCREASED [None]
